FAERS Safety Report 24289362 (Version 1)
Quarter: 2024Q3

REPORT INFORMATION
  Report Type: Spontaneous
  Country: FR (occurrence: FR)
  Receive Date: 20240906
  Receipt Date: 20240906
  Transmission Date: 20241017
  Serious: Yes (Hospitalization, Other)
  Sender: BRISTOL MYERS SQUIBB
  Company Number: None

PATIENT
  Age: 73 Year
  Sex: Male

DRUGS (4)
  1. IPILIMUMAB [Suspect]
     Active Substance: IPILIMUMAB
     Indication: Clear cell renal cell carcinoma
     Dosage: C1/ 1 MG/KG
     Route: 042
     Dates: start: 20240702, end: 20240702
  2. IPILIMUMAB [Suspect]
     Active Substance: IPILIMUMAB
     Dosage: C2 1 MG/KG
     Route: 042
     Dates: start: 20240723, end: 20240723
  3. NIVOLUMAB [Suspect]
     Active Substance: NIVOLUMAB
     Indication: Clear cell renal cell carcinoma
     Dosage: C1
     Route: 042
     Dates: start: 20240702, end: 20240702
  4. NIVOLUMAB [Suspect]
     Active Substance: NIVOLUMAB
     Dosage: C2 (D1-D22)(3 MG/KG )
     Route: 042
     Dates: start: 20240723, end: 20240723

REACTIONS (2)
  - Optic ischaemic neuropathy [Recovering/Resolving]
  - Vasculitis [Recovering/Resolving]

NARRATIVE: CASE EVENT DATE: 20240723
